FAERS Safety Report 12623485 (Version 1)
Quarter: 2016Q3

REPORT INFORMATION
  Report Type: Spontaneous
  Country: US (occurrence: US)
  Receive Date: 20160804
  Receipt Date: 20160804
  Transmission Date: 20161109
  Serious: No
  Sender: FDA-Public Use
  Company Number: US-ELI_LILLY_AND_COMPANY-US201608001600

PATIENT
  Sex: Female

DRUGS (7)
  1. HUMULIN 70/30 [Suspect]
     Active Substance: INSULIN HUMAN
     Dosage: 38 U, EACH EVENING
     Route: 065
     Dates: start: 20160708, end: 20160728
  2. HUMULIN 70/30 [Suspect]
     Active Substance: INSULIN HUMAN
     Dosage: 30 U, TID
     Route: 065
     Dates: start: 20160728
  3. HUMULIN 70/30 [Suspect]
     Active Substance: INSULIN HUMAN
     Dosage: 38 U, EACH EVENING
     Route: 065
     Dates: start: 20160708, end: 20160728
  4. HUMULIN 70/30 [Suspect]
     Active Substance: INSULIN HUMAN
     Dosage: 30 U, TID
     Route: 065
     Dates: start: 20160728
  5. MAXALT [Concomitant]
     Active Substance: RIZATRIPTAN BENZOATE
     Indication: MIGRAINE
  6. HUMULIN 70/30 [Suspect]
     Active Substance: INSULIN HUMAN
     Indication: TYPE 2 DIABETES MELLITUS
     Dosage: 48 U, EACH MORNING
     Route: 065
     Dates: start: 20160708, end: 20160728
  7. HUMULIN 70/30 [Suspect]
     Active Substance: INSULIN HUMAN
     Dosage: 48 U, EACH MORNING
     Route: 065
     Dates: start: 20160708, end: 20160728

REACTIONS (2)
  - Blood glucose increased [Unknown]
  - Injection site pain [Unknown]
